FAERS Safety Report 11481411 (Version 2)
Quarter: 2015Q3

REPORT INFORMATION
  Report Type: Spontaneous
  Country: US (occurrence: US)
  Receive Date: 20150903
  Receipt Date: 20150903
  Transmission Date: 20151125
  Serious: No
  Sender: FDA-Public Use
  Company Number: US-ELI_LILLY_AND_COMPANY-US201203004902

PATIENT
  Age: 65 Year
  Sex: Female

DRUGS (7)
  1. CYMBALTA [Suspect]
     Active Substance: DULOXETINE HYDROCHLORIDE
     Indication: DEPRESSION
     Dosage: UNK, UNKNOWN
  2. SYNTHROID [Concomitant]
     Active Substance: LEVOTHYROXINE SODIUM
  3. WELLBUTRIN [Concomitant]
     Active Substance: BUPROPION HYDROCHLORIDE
  4. CYMBALTA [Suspect]
     Active Substance: DULOXETINE HYDROCHLORIDE
     Dosage: 90 MG, QD
     Dates: start: 201106
  5. CYMBALTA [Suspect]
     Active Substance: DULOXETINE HYDROCHLORIDE
     Dosage: 60 MG, QD
  6. LISINOPRIL. [Concomitant]
     Active Substance: LISINOPRIL
  7. INSULIN [Concomitant]
     Active Substance: INSULIN NOS

REACTIONS (6)
  - Hypersensitivity [Unknown]
  - Hyperplasia [Unknown]
  - Swollen tongue [Unknown]
  - Tongue biting [Unknown]
  - Tardive dyskinesia [Unknown]
  - Biopsy tongue [Unknown]
